FAERS Safety Report 5678822-9 (Version None)
Quarter: 2008Q1

REPORT INFORMATION
  Report Type: 
  Country: None (occurrence: None)
  Receive Date: 20080321
  Receipt Date: 20080313
  Transmission Date: 20080703
  Serious: Yes (Life-Threatening, Hospitalization)
  Sender: FDA-Public Use
  Company Number: CLOF-10651

PATIENT
  Age: 75 Year
  Sex: Female

DRUGS (2)
  1. CLOFARABINE (CLOFARABINE) [Suspect]
     Indication: ACUTE MYELOID LEUKAEMIA
     Dosage: 30 MG/M2, QD, INTRAVENOUS; 20 MG/M2, QDX5
     Route: 042
     Dates: start: 20070802, end: 20070806
  2. CLOFARABINE (CLOFARABINE) [Suspect]
     Indication: ACUTE MYELOID LEUKAEMIA
     Dosage: 30 MG/M2, QD, INTRAVENOUS; 20 MG/M2, QDX5
     Route: 042
     Dates: start: 20071016, end: 20071020

REACTIONS (14)
  - CARDIOMEGALY [None]
  - CHOLELITHIASIS [None]
  - CONFUSIONAL STATE [None]
  - EJECTION FRACTION DECREASED [None]
  - FEBRILE NEUTROPENIA [None]
  - HYPOTENSION [None]
  - MITRAL VALVE INCOMPETENCE [None]
  - MYOCARDIAL INFARCTION [None]
  - OESOPHAGEAL DISORDER [None]
  - PANCREATITIS [None]
  - PANCYTOPENIA [None]
  - PERICARDIAL EFFUSION [None]
  - PULMONARY CONGESTION [None]
  - TRICUSPID VALVE INCOMPETENCE [None]
